FAERS Safety Report 5372962-X (Version None)
Quarter: 2007Q2

REPORT INFORMATION
  Report Type: 
  Country: None (occurrence: None)
  Receive Date: 20070626
  Receipt Date: 20070614
  Transmission Date: 20071010
  Serious: Yes (Life-Threatening, Hospitalization, Disabling, Other)
  Sender: FDA-Public Use
  Company Number: 07062151

PATIENT
  Age: 48 Year
  Sex: Female

DRUGS (1)
  1. CLOBETASOL PROPIONATE [Suspect]
     Indication: ECZEMA
     Dosage: TOPICAL
     Route: 061

REACTIONS (4)
  - CUSHING'S SYNDROME [None]
  - DIABETES MELLITUS [None]
  - MEDICATION ERROR [None]
  - OSTEOPOROSIS [None]
